FAERS Safety Report 24834268 (Version 8)
Quarter: 2025Q3

REPORT INFORMATION
  Report Type: Spontaneous
  Country: US (occurrence: US)
  Receive Date: 20250113
  Receipt Date: 20250909
  Transmission Date: 20251021
  Serious: No
  Sender: BIOGEN
  Company Number: US-BIOGEN-2025BI01296289

PATIENT
  Age: 47 Year
  Sex: Male

DRUGS (2)
  1. QALSODY [Suspect]
     Active Substance: TOFERSEN
     Indication: Amyotrophic lateral sclerosis
     Route: 050
     Dates: start: 20241203
  2. LIDOCAINE [Concomitant]
     Active Substance: LIDOCAINE
     Indication: Product used for unknown indication
     Route: 050

REACTIONS (14)
  - Muscle contractions involuntary [Unknown]
  - Product preparation error [Unknown]
  - Paraesthesia [Unknown]
  - Procedural complication [Unknown]
  - Therapeutic response shortened [Unknown]
  - Muscular weakness [Unknown]
  - Muscle spasms [Unknown]
  - Muscle twitching [Unknown]
  - Light chain analysis increased [Unknown]
  - Back pain [Unknown]
  - Arthralgia [Unknown]
  - Neck pain [Unknown]
  - Musculoskeletal stiffness [Unknown]
  - Myalgia [Unknown]

NARRATIVE: CASE EVENT DATE: 20241203
